FAERS Safety Report 9069490 (Version 1)
Quarter: 2013Q1

REPORT INFORMATION
  Report Type: Spontaneous
  Country: DK (occurrence: GB)
  Receive Date: 20130215
  Receipt Date: 20130215
  Transmission Date: 20140127
  Serious: Yes (Other)
  Sender: FDA-Public Use
  Company Number: GB-FRI-1000042657

PATIENT
  Sex: Female

DRUGS (5)
  1. CITALOPRAM [Suspect]
     Route: 048
  2. DIAZEPAM [Suspect]
     Route: 048
  3. LORAZEPAM [Suspect]
     Dosage: 0.5 MG
  4. TEMAZEPAM [Suspect]
  5. ZOPICLONE [Suspect]
     Dosage: 3.5 MG IN THE EVENING

REACTIONS (7)
  - Anxiety [Unknown]
  - Hyperhidrosis [Unknown]
  - Insomnia [Unknown]
  - Somnolence [Unknown]
  - Drug interaction [Unknown]
  - Medication error [Unknown]
  - Incorrect dose administered [Unknown]
